FAERS Safety Report 4731891-2 (Version None)
Quarter: 2005Q3

REPORT INFORMATION
  Report Type: 
  Country: None (occurrence: None)
  Receive Date: 20050802
  Receipt Date: 20050802
  Transmission Date: 20060218
  Serious: No
  Sender: FDA-Public Use
  Company Number: None

PATIENT
  Age: 83 Year
  Sex: Male
  Weight: 96.6162 kg

DRUGS (1)
  1. LIDOCAINE 1% [Suspect]
     Indication: INFUSION RELATED REACTION
     Dosage: 10 MG X 4 DOSES INTRAVENOUS
     Route: 042
     Dates: start: 20050721, end: 20050722

REACTIONS (5)
  - HYPOTENSION [None]
  - PROCEDURAL COMPLICATION [None]
  - RESPIRATORY ARREST [None]
  - SOMNOLENCE [None]
  - SYNCOPE [None]
